FAERS Safety Report 6924393-6 (Version None)
Quarter: 2010Q3

REPORT INFORMATION
  Report Type: 
  Country: None (occurrence: None)
  Receive Date: 20100809
  Receipt Date: 20100803
  Transmission Date: 20110219
  Serious: Yes (Hospitalization, Other)
  Sender: FDA-Public Use
  Company Number: AEUSA201000229

PATIENT
  Age: 50 Year
  Sex: Male
  Weight: 136.0791 kg

DRUGS (5)
  1. PROLASTIN-C [Suspect]
     Indication: ALPHA-1 ANTI-TRYPSIN DEFICIENCY
     Dosage: 8000 MG;QW;IV
     Route: 042
     Dates: start: 20100507
  2. HEPARIN (CON.) [Concomitant]
  3. SPIRIVA (CON.) [Concomitant]
  4. ADVAIR (CON.) [Concomitant]
  5. PROLASTIN (CON.) [Concomitant]

REACTIONS (3)
  - CHEST PAIN [None]
  - NECK PAIN [None]
  - VENOUS THROMBOSIS LIMB [None]
